FAERS Safety Report 6402818-2 (Version None)
Quarter: 2009Q4

REPORT INFORMATION
  Report Type: 
  Country: None (occurrence: None)
  Receive Date: 20091016
  Receipt Date: 20091006
  Transmission Date: 20100525
  Serious: Yes (Hospitalization)
  Sender: FDA-Public Use
  Company Number: US-BIOGENIDEC-2009BI028489

PATIENT
  Age: 46 Year
  Sex: Female

DRUGS (7)
  1. TYSABRI [Suspect]
     Indication: CROHN'S DISEASE
     Route: 042
     Dates: start: 20081017, end: 20090716
  2. VICODIN [Concomitant]
     Route: 048
  3. ALBUTEROL [Concomitant]
     Route: 055
  4. KLONOPIN [Concomitant]
  5. OXYCODONE [Concomitant]
  6. PAXIL [Concomitant]
     Route: 048
  7. PREDNISONE [Concomitant]

REACTIONS (5)
  - CLOSTRIDIUM DIFFICILE COLITIS [None]
  - CROHN'S DISEASE [None]
  - ENTEROCOCCAL BACTERAEMIA [None]
  - STAPHYLOCOCCAL INFECTION [None]
  - WOUND INFECTION [None]
